APPROVED DRUG PRODUCT: ZOKINVY
Active Ingredient: LONAFARNIB
Strength: 75MG
Dosage Form/Route: CAPSULE;ORAL
Application: N213969 | Product #002
Applicant: SENTYNL THERAPEUTICS INC
Approved: Nov 20, 2020 | RLD: Yes | RS: Yes | Type: RX

PATENTS:
Patent 7838531 | Expires: Jul 26, 2029

EXCLUSIVITY:
Code: ODE-324 | Date: Nov 20, 2027